FAERS Safety Report 15221704 (Version 1)
Quarter: 2018Q3

REPORT INFORMATION
  Report Type: Spontaneous
  Country: ES (occurrence: ES)
  Receive Date: 20180731
  Receipt Date: 20180731
  Transmission Date: 20181010
  Serious: Yes (Hospitalization)
  Sender: FDA-Public Use
  Company Number: ES-SEBELA IRELAND LIMITED-2018SEB00193

PATIENT
  Age: 10 Year
  Sex: Male

DRUGS (3)
  1. ATROPINE. [Suspect]
     Active Substance: ATROPINE
     Dosage: 0.1 MG/KG, ONCE
     Route: 040
  2. KETAMINE [Concomitant]
     Active Substance: KETAMINE
     Indication: SEDATION
     Route: 065
  3. MIDAZOLAM [Concomitant]
     Active Substance: MIDAZOLAM HYDROCHLORIDE
     Indication: SEDATION
     Route: 065

REACTIONS (1)
  - Kounis syndrome [Recovered/Resolved]
